FAERS Safety Report 13668214 (Version 1)
Quarter: 2017Q2

REPORT INFORMATION
  Report Type: Spontaneous
  Country: US (occurrence: US)
  Receive Date: 20170619
  Receipt Date: 20170619
  Transmission Date: 20170830
  Serious: Yes (Hospitalization, Other)
  Sender: FDA-Public Use
  Company Number: None

PATIENT
  Age: 58 Year
  Sex: Male
  Weight: 101.2 kg

DRUGS (14)
  1. A-HYDROCORT [Concomitant]
     Active Substance: HYDROCORTISONE SODIUM SUCCINATE
  2. ZYRTEC [Concomitant]
     Active Substance: CETIRIZINE HYDROCHLORIDE
  3. PANTOPRAZOLE [Concomitant]
     Active Substance: PANTOPRAZOLE
  4. ROBITTUSSIN COUGH SYP. [Concomitant]
  5. MONTELUKAST [Suspect]
     Active Substance: MONTELUKAST SODIUM
     Indication: ASTHMA
     Dosage: ?          QUANTITY:100 TABLET(S);?
     Route: 048
     Dates: start: 20140202
  6. SINGULAIR [Concomitant]
     Active Substance: MONTELUKAST SODIUM
  7. CEPTAPHIL [Concomitant]
  8. CHERATUSSIN COUGH SYRUP [Concomitant]
  9. LORAZEPAM. [Concomitant]
     Active Substance: LORAZEPAM
  10. LOSARTAN. [Concomitant]
     Active Substance: LOSARTAN
  11. GUMMIE FIBER AND PROTEIN POWDER [Concomitant]
  12. VENTOLIN [Concomitant]
     Active Substance: ALBUTEROL SULFATE
  13. AZELASTINE [Concomitant]
     Active Substance: AZELASTINE
  14. DULERA [Concomitant]
     Active Substance: FORMOTEROL FUMARATE DIHYDRATE\MOMETASONE FUROATE

REACTIONS (6)
  - Nightmare [None]
  - Screaming [None]
  - Rotator cuff syndrome [None]
  - Abnormal dreams [None]
  - Aggression [None]
  - Fall [None]

NARRATIVE: CASE EVENT DATE: 20160602
